FAERS Safety Report 15604818 (Version 1)
Quarter: 2018Q4

REPORT INFORMATION
  Report Type: Spontaneous
  Country: US (occurrence: US)
  Receive Date: 20181106
  Receipt Date: 20181106
  Transmission Date: 20190205
  Serious: No
  Sender: FDA-Public Use
  Company Number: None

PATIENT
  Age: 71 Year
  Sex: Female

DRUGS (1)
  1. CAPECITABINE TAB 150MG [Suspect]
     Active Substance: CAPECITABINE
     Dates: start: 201807

REACTIONS (10)
  - Adverse event [None]
  - Fatigue [None]
  - Chemotherapeutic drug level increased [None]
  - Skin exfoliation [None]
  - Anaemia [None]
  - White blood cell count decreased [None]
  - Platelet count decreased [None]
  - Refusal of treatment by patient [None]
  - Nail discolouration [None]
  - Treatment noncompliance [None]

NARRATIVE: CASE EVENT DATE: 20181102
